FAERS Safety Report 22094025 (Version 2)
Quarter: 2023Q2

REPORT INFORMATION
  Report Type: Spontaneous
  Country: JP (occurrence: JP)
  Receive Date: 20230314
  Receipt Date: 20230417
  Transmission Date: 20230721
  Serious: Yes (Hospitalization, Other)
  Sender: FDA-Public Use
  Company Number: JP-ABBVIE-4339792

PATIENT
  Age: 50 Year
  Sex: Male

DRUGS (2)
  1. RINVOQ [Suspect]
     Active Substance: UPADACITINIB
     Indication: Dermatitis atopic
     Dosage: 30 MILLIGRAM
     Route: 048
     Dates: start: 202208, end: 202302
  2. RINVOQ [Suspect]
     Active Substance: UPADACITINIB
     Indication: Dermatitis atopic
     Dosage: 30 MILLIGRAM
     Route: 048
     Dates: start: 202304

REACTIONS (3)
  - Herpes zoster [Recovered/Resolved]
  - Dysuria [Recovered/Resolved]
  - Spinal cord injury [Recovered/Resolved]

NARRATIVE: CASE EVENT DATE: 20230201
